FAERS Safety Report 24246216 (Version 2)
Quarter: 2024Q4

REPORT INFORMATION
  Report Type: Report from Study
  Country: US (occurrence: US)
  Receive Date: 20240824
  Receipt Date: 20241004
  Transmission Date: 20250115
  Serious: Yes (Other)
  Sender: JOHNSON AND JOHNSON
  Company Number: US-JNJFOC-20240857666

PATIENT
  Age: 67 Year
  Sex: Female
  Weight: 66.3 kg

DRUGS (2)
  1. TALQUETAMAB [Suspect]
     Active Substance: TALQUETAMAB
     Indication: Plasma cell myeloma refractory
     Dosage: 0.01MG/KG
     Route: 058
     Dates: start: 20240816
  2. TALQUETAMAB [Suspect]
     Active Substance: TALQUETAMAB
     Dosage: 0.06MG/KG
     Route: 058
     Dates: start: 20240819

REACTIONS (1)
  - Cytokine release syndrome [Recovered/Resolved]

NARRATIVE: CASE EVENT DATE: 20240820
